FAERS Safety Report 12439832 (Version 1)
Quarter: 2016Q2

REPORT INFORMATION
  Report Type: Other
  Country: GB (occurrence: GB)
  Receive Date: 20160606
  Receipt Date: 20160606
  Transmission Date: 20160815
  Serious: Yes (Hospitalization)
  Sender: FDA-Public Use
  Company Number: GB-MYLANLABS-2016M1023185

PATIENT

DRUGS (13)
  1. ALENDRONATE [Suspect]
     Active Substance: ALENDRONATE SODIUM
     Indication: HIP FRACTURE
     Dosage: 70 MG, QW
     Route: 048
  2. LORAZEPAM. [Concomitant]
     Active Substance: LORAZEPAM
     Dosage: UNK
  3. CARBOMER [Concomitant]
     Active Substance: CARBOMER
     Dosage: 980
     Route: 050
  4. FERROUS SULFATE. [Concomitant]
     Active Substance: FERROUS SULFATE
  5. NITROFURANTOIN. [Concomitant]
     Active Substance: NITROFURANTOIN
     Dosage: UNK
  6. MOVICOL [Concomitant]
     Active Substance: POLYETHYLENE GLYCOL 3350\POTASSIUM CHLORIDE\SODIUM BICARBONATE\SODIUM CHLORIDE
     Dosage: UNK
  7. OMEPRAZOLE. [Concomitant]
     Active Substance: OMEPRAZOLE
     Dosage: UNK
  8. PARACETAMOL [Concomitant]
     Active Substance: ACETAMINOPHEN
     Dosage: UNK
  9. CLOPIDOGREL [Concomitant]
     Active Substance: CLOPIDOGREL BISULFATE
     Dosage: UNK
  10. ADCAL D3 [Concomitant]
     Active Substance: CALCIUM CARBONATE\CHOLECALCIFEROL
     Dosage: UNK
  11. ALGINATE DE SODIUM/BICARBONATE DE SODIUM [Concomitant]
     Dosage: ALGINATE RAFT FORMING ORAL LIQUID.
     Route: 048
  12. GLYCERYL TRINITRATE [Concomitant]
     Active Substance: NITROGLYCERIN
     Dosage: UNK
  13. TRAVOPROST [Concomitant]
     Active Substance: TRAVOPROST
     Dosage: UNK

REACTIONS (6)
  - Malaise [Unknown]
  - Pyrexia [Unknown]
  - Dysphagia [Unknown]
  - Abdominal pain [Recovered/Resolved with Sequelae]
  - Oesophagitis [Recovered/Resolved with Sequelae]
  - Tracheo-oesophageal fistula [Unknown]
